FAERS Safety Report 4411078-3 (Version None)
Quarter: 2004Q2

REPORT INFORMATION
  Report Type: 
  Country: None (occurrence: None)
  Receive Date: 20040630
  Receipt Date: 20040420
  Transmission Date: 20050107
  Serious: No
  Sender: FDA-Public Use
  Company Number: 04P-163-0258028-00

PATIENT
  Age: 71 Year
  Sex: Female
  Weight: 52.1637 kg

DRUGS (10)
  1. HUMIRA [Suspect]
     Indication: RHEUMATOID ARTHRITIS
     Dosage: 40 MG, 1 IN 2 WK, SUBCUTANEOUS
     Route: 058
     Dates: start: 20040311
  2. PREDNISONE [Concomitant]
  3. ROFECOXIB [Concomitant]
  4. PARACETAMOL [Concomitant]
  5. METHOTREXATE [Concomitant]
  6. FOLIC ACID [Concomitant]
  7. CONJUGATED ESTROGEN [Concomitant]
  8. MULTIVITAMIN [Concomitant]
  9. TOCOPHEROL CONCENTRATE CAP [Concomitant]
  10. FISH OIL [Concomitant]

REACTIONS (10)
  - ARTHRALGIA [None]
  - ASTHENIA [None]
  - BODY TEMPERATURE INCREASED [None]
  - FEELING ABNORMAL [None]
  - HYPOAESTHESIA [None]
  - HYPOKINESIA [None]
  - LOWER RESPIRATORY TRACT INFECTION [None]
  - PHARYNGOLARYNGEAL PAIN [None]
  - RASH [None]
  - SWELLING [None]
